FAERS Safety Report 8490084-6 (Version None)
Quarter: 2012Q3

REPORT INFORMATION
  Report Type: 
  Country: None (occurrence: None)
  Receive Date: 20120705
  Receipt Date: 20120625
  Transmission Date: 20120928
  Serious: Yes (Other)
  Sender: FDA-Public Use
  Company Number: US-MUTUAL PHARMACEUTICAL COMPANY, INC.-ALBT20120001

PATIENT
  Sex: Female

DRUGS (7)
  1. ESTRADIOL 1 MG TABLET [Concomitant]
     Indication: PRODUCT USED FOR UNKNOWN INDICATION
     Route: 065
  2. ATROVENT 17 MCG/ACTUATION HFA AEROSOL INHALER [Concomitant]
     Indication: PRODUCT USED FOR UNKNOWN INDICATION
  3. ALPRAZOLAM 0.5 MG TABLET [Concomitant]
     Indication: PRODUCT USED FOR UNKNOWN INDICATION
     Route: 065
  4. ALBUTEROL [Suspect]
     Indication: PRODUCT USED FOR UNKNOWN INDICATION
     Route: 048
  5. ALUPENT 650 MCG/ACTUATION AEROSOL [Concomitant]
     Indication: PRODUCT USED FOR UNKNOWN INDICATION
  6. AZULFIDINE EN 500 MG, DELAYED RELEASE (E.C.) [Concomitant]
     Indication: PRODUCT USED FOR UNKNOWN INDICATION
     Route: 065
  7. DEMEROL 50 MG TABLET [Concomitant]
     Indication: PRODUCT USED FOR UNKNOWN INDICATION
     Route: 065

REACTIONS (4)
  - DYSPNOEA [None]
  - DRUG HYPERSENSITIVITY [None]
  - PHARYNGEAL OEDEMA [None]
  - VOMITING [None]
